FAERS Safety Report 7267867-3 (Version None)
Quarter: 2011Q1

REPORT INFORMATION
  Report Type: 
  Country: None (occurrence: None)
  Receive Date: 20110201
  Receipt Date: 20110125
  Transmission Date: 20110831
  Serious: Yes (Other)
  Sender: FDA-Public Use
  Company Number: US-ROCHE-750244

PATIENT
  Sex: Female
  Weight: 114 kg

DRUGS (3)
  1. BEVACIZUMAB [Suspect]
     Dosage: DOSE: 25 MG/ML
     Route: 065
  2. WARFARIN [Concomitant]
  3. CAPECITABINE [Suspect]
     Dosage: ONE TABLET IN MORNING AND TWO TABLETS IN NIGHT.
     Route: 048
     Dates: start: 20090701

REACTIONS (2)
  - TOOTH DISORDER [None]
  - PAIN [None]
